FAERS Safety Report 4356866-7 (Version None)
Quarter: 2004Q2

REPORT INFORMATION
  Report Type: 
  Country: None (occurrence: None)
  Receive Date: 20040507
  Receipt Date: 20040419
  Transmission Date: 20050107
  Serious: Yes (Other)
  Sender: FDA-Public Use
  Company Number: USA021224663

PATIENT
  Age: 56 Year
  Sex: Female
  Weight: 70 kg

DRUGS (6)
  1. EVISTA [Suspect]
     Indication: OSTEOPOROSIS
     Dosage: 60 MG/1 EVERY OTHER DAY
     Dates: start: 20021207
  2. DYAZIDE [Concomitant]
  3. MULTIVITAMIN [Concomitant]
  4. CARAFATE [Concomitant]
  5. MIACALCIN [Concomitant]
  6. TYLENOL PM [Concomitant]

REACTIONS (12)
  - ARTHRALGIA [None]
  - CONSTIPATION [None]
  - CONTUSION [None]
  - DIARRHOEA [None]
  - FALL [None]
  - FOOT FRACTURE [None]
  - HOT FLUSH [None]
  - JOINT SWELLING [None]
  - LIP DRY [None]
  - MUSCLE CRAMP [None]
  - OEDEMA PERIPHERAL [None]
  - VASODILATATION [None]
